FAERS Safety Report 13602606 (Version 2)
Quarter: 2017Q2

REPORT INFORMATION
  Report Type: Spontaneous
  Country: CN (occurrence: CN)
  Receive Date: 20170601
  Receipt Date: 20170628
  Transmission Date: 20170830
  Serious: Yes (Hospitalization)
  Sender: FDA-Public Use
  Company Number: CN-NOVOPROD-547264

PATIENT
  Age: 72 Year
  Sex: Female

DRUGS (2)
  1. NOVOMIX 30 PENFILL [Suspect]
     Active Substance: INSULIN ASPART
     Indication: PRODUCT USED FOR UNKNOWN INDICATION
     Dosage: UNK
     Route: 065
     Dates: start: 201605
  2. NOVOMIX 30 PENFILL [Suspect]
     Active Substance: INSULIN ASPART
     Dosage: UNK
     Route: 065
     Dates: start: 201703, end: 2017

REACTIONS (6)
  - Chest pain [Unknown]
  - Protein urine present [Unknown]
  - Product quality issue [Unknown]
  - Back pain [Unknown]
  - Retinal haemorrhage [Unknown]
  - Hyperglycaemia [Unknown]

NARRATIVE: CASE EVENT DATE: 2017
